FAERS Safety Report 14024105 (Version 1)
Quarter: 2017Q3

REPORT INFORMATION
  Report Type: Spontaneous
  Country: US (occurrence: None)
  Receive Date: 20170929
  Receipt Date: 20170929
  Transmission Date: 20171128
  Serious: Yes (Hospitalization)
  Sender: FDA-Public Use
  Company Number: None

PATIENT
  Age: 51 Year
  Sex: Female

DRUGS (3)
  1. PENICILLIN [Concomitant]
     Active Substance: PENICILLIN
  2. LEVETIRACETA [Concomitant]
  3. TASIGNA [Suspect]
     Active Substance: NILOTINIB
     Indication: CHRONIC MYELOID LEUKAEMIA
     Route: 048
     Dates: start: 20170621

REACTIONS (2)
  - Therapy cessation [None]
  - Disease recurrence [None]

NARRATIVE: CASE EVENT DATE: 20170920
